FAERS Safety Report 8778835 (Version 2)
Quarter: 2013Q1

REPORT INFORMATION
  Report Type: Spontaneous
  Country: CA (occurrence: CA)
  Receive Date: 20120912
  Receipt Date: 20130121
  Transmission Date: 20140127
  Serious: Yes (Other)
  Sender: FDA-Public Use
  Company Number: CA-BAYER-2012-094555

PATIENT
  Age: 86 Year
  Sex: Female

DRUGS (12)
  1. AVELOX [Suspect]
     Indication: PNEUMONIA
     Dosage: 400 MG, QD
     Route: 048
     Dates: start: 20120418, end: 20120419
  2. ASA [Concomitant]
  3. ATENOLOL [Concomitant]
  4. CALCIUM [Concomitant]
  5. CRESTOR [Concomitant]
     Dosage: UNK
     Dates: end: 20120411
  6. EZETROL [Concomitant]
     Dosage: UNK
  7. MICARDIS [Concomitant]
  8. MULTIVITAMINS [Concomitant]
  9. NOVASEC [Concomitant]
  10. PLAVIX [Concomitant]
  11. VITALUX [Concomitant]
     Dosage: UNK
  12. VITAMIN D [Concomitant]

REACTIONS (5)
  - Dizziness [Recovered/Resolved]
  - Epistaxis [Recovered/Resolved]
  - Feeling abnormal [Recovered/Resolved]
  - Hallucination, visual [Recovered/Resolved]
  - Nausea [Recovered/Resolved]
